FAERS Safety Report 6587724-5 (Version None)
Quarter: 2010Q1

REPORT INFORMATION
  Report Type: 
  Country: None (occurrence: None)
  Receive Date: 20100218
  Receipt Date: 20091223
  Transmission Date: 20100710
  Serious: No
  Sender: FDA-Public Use
  Company Number: A0836722A

PATIENT
  Age: 69 Year
  Sex: Male

DRUGS (10)
  1. COREG CR [Suspect]
     Dosage: 20MG PER DAY
     Route: 048
  2. DARVON [Concomitant]
  3. WELLCOR (UNSPECIFIED) [Concomitant]
  4. LORATADINE [Concomitant]
  5. ASPIRIN [Concomitant]
  6. FUROSEMIDE [Concomitant]
  7. SYNTHROID [Concomitant]
  8. UNKNOWN MEDICATION [Concomitant]
  9. SPIRONOLACTONE [Concomitant]
  10. PLAVIX [Concomitant]

REACTIONS (3)
  - ARTHRALGIA [None]
  - ARTHROPATHY [None]
  - JOINT SWELLING [None]
